FAERS Safety Report 21779064 (Version 1)
Quarter: 2022Q4

REPORT INFORMATION
  Report Type: Report from Study
  Country: US (occurrence: US)
  Receive Date: 20221226
  Receipt Date: 20221226
  Transmission Date: 20230112
  Serious: No
  Sender: FDA-Public Use
  Company Number: US-ABBVIE-4249906

PATIENT
  Sex: Female

DRUGS (2)
  1. IMBRUVICA [Suspect]
     Active Substance: IBRUTINIB
     Indication: Chronic lymphocytic leukaemia
     Dosage: LAST ADMINISTRATION DATE WAS 2022
     Route: 048
     Dates: start: 202208
  2. IMBRUVICA [Suspect]
     Active Substance: IBRUTINIB
     Indication: Chronic lymphocytic leukaemia
     Dosage: FIRST ADMINISTRATION DATE WAS 2022
     Route: 048

REACTIONS (5)
  - Vertigo [Unknown]
  - COVID-19 [Unknown]
  - Asthenia [Unknown]
  - Depression [Recovering/Resolving]
  - Negative thoughts [Recovering/Resolving]
